FAERS Safety Report 4479318-2 (Version None)
Quarter: 2004Q4

REPORT INFORMATION
  Report Type: 
  Country: None (occurrence: None)
  Receive Date: 20041015
  Receipt Date: 20040927
  Transmission Date: 20050328
  Serious: Yes (Death)
  Sender: FDA-Public Use
  Company Number: 2004235981US

PATIENT
  Age: 56 Year
  Sex: Male

DRUGS (3)
  1. CALAN (VERAPAMIL) TABLET [Suspect]
     Dosage: ORAL
     Route: 048
  2. HYDROCODONE BITARTRATE W/ ACETAMINOPHEN [Suspect]
     Dosage: ORAL
     Route: 048
  3. CITALOPRAM [Suspect]
     Dosage: ORAL
     Route: 048

REACTIONS (8)
  - BRADYCARDIA [None]
  - COMPLETED SUICIDE [None]
  - HYPOTENSION [None]
  - HYPOVENTILATION [None]
  - HYPOXIA [None]
  - MENTAL STATUS CHANGES [None]
  - MULTIPLE DRUG OVERDOSE INTENTIONAL [None]
  - REFUSAL OF TREATMENT BY PATIENT [None]
